FAERS Safety Report 6209007-5 (Version None)
Quarter: 2009Q2

REPORT INFORMATION
  Report Type: 
  Country: None (occurrence: None)
  Receive Date: 20090522
  Receipt Date: 20090206
  Transmission Date: 20091009
  Serious: No
  Sender: FDA-Public Use
  Company Number: 8042734

PATIENT
  Age: 74 Year
  Sex: Female
  Weight: 65.7 kg

DRUGS (11)
  1. CIMZIA [Suspect]
     Indication: CROHN'S DISEASE
     Dosage: 400 MG SC
     Route: 058
     Dates: start: 20081105
  2. SYNTHROID [Concomitant]
  3. PAXIL [Concomitant]
  4. MAGNESIUM SULFATE [Concomitant]
  5. LOPRESSOR [Concomitant]
  6. PENTASA [Concomitant]
  7. FOSAMAX [Concomitant]
  8. VITAMIN D [Concomitant]
  9. CALCIUM [Concomitant]
  10. MULTI-VITAMINS [Concomitant]
  11. ASCORBIC ACID [Concomitant]

REACTIONS (6)
  - ANOREXIA [None]
  - ARTHRALGIA [None]
  - BRONCHITIS [None]
  - HYPERHIDROSIS [None]
  - INJECTION SITE REACTION [None]
  - NAUSEA [None]
